FAERS Safety Report 12797086 (Version 1)
Quarter: 2016Q3

REPORT INFORMATION
  Report Type: Spontaneous
  Country: GB (occurrence: GB)
  Receive Date: 20160929
  Receipt Date: 20160929
  Transmission Date: 20161109
  Serious: Yes (Life-Threatening)
  Sender: FDA-Public Use
  Company Number: GB-ASTRAZENECA-2016SF02316

PATIENT
  Age: 50 Year
  Sex: Male

DRUGS (4)
  1. PARACETAMOL [Concomitant]
     Active Substance: ACETAMINOPHEN
  2. MEROPENEM. [Suspect]
     Active Substance: MEROPENEM
     Indication: WOUND INFECTION
     Dosage: 1.0G UNKNOWN
     Route: 042
     Dates: start: 20160908, end: 20160909
  3. ZOMORPH [Concomitant]
     Active Substance: MORPHINE SULFATE
  4. NORMAL SALINE [Suspect]
     Active Substance: SODIUM CHLORIDE
     Dosage: 5.0ML UNKNOWN
     Route: 065
     Dates: start: 20160908, end: 20160909

REACTIONS (3)
  - Nausea [Unknown]
  - Epilepsy [Recovered/Resolved]
  - Unresponsive to stimuli [Recovered/Resolved]

NARRATIVE: CASE EVENT DATE: 20160909
